FAERS Safety Report 25665329 (Version 1)
Quarter: 2025Q3

REPORT INFORMATION
  Report Type: Spontaneous
  Country: US (occurrence: None)
  Receive Date: 20250811
  Receipt Date: 20250811
  Transmission Date: 20251020
  Serious: Yes (Hospitalization)
  Sender: FDA-CTU
  Company Number: None

PATIENT
  Sex: Female

DRUGS (10)
  1. DALFAMPRIDINE [Suspect]
     Active Substance: DALFAMPRIDINE
     Indication: Multiple sclerosis
     Route: 048
     Dates: start: 20181016
  2. I ASPIRIN TAB 325MG EC [Concomitant]
  3. DIAZEPAM TAB 10MG [Concomitant]
  4. DIPHENHYDRAM INJ 50MG/ML [Concomitant]
  5. HYDROCHLOROTHIAZIDE [Concomitant]
     Active Substance: HYDROCHLOROTHIAZIDE
  6. LISINOPRIL [Concomitant]
     Active Substance: LISINOPRIL
  7. OCREVUS [Concomitant]
     Active Substance: OCRELIZUMAB
  8. SIMVASTATIN [Concomitant]
     Active Substance: SIMVASTATIN
  9. VALIUM TAB [Concomitant]
  10. VITAMIN D3 CAP 5000UNIT [Concomitant]

REACTIONS (1)
  - Fall [None]
